FAERS Safety Report 4296610-5 (Version None)
Quarter: 2004Q1

REPORT INFORMATION
  Report Type: 
  Country: None (occurrence: None)
  Receive Date: 20040126
  Receipt Date: 20030826
  Transmission Date: 20041129
  Serious: No
  Sender: FDA-Public Use
  Company Number: USA030845437

PATIENT
  Age: 8 Year
  Sex: Male

DRUGS (2)
  1. STRATTERA [Suspect]
     Indication: ATTENTION DEFICIT/HYPERACTIVITY DISORDER
     Dosage: 10 MG/DAY
     Dates: start: 20030821
  2. DEPAKOTE [Concomitant]

REACTIONS (5)
  - AFFECT LABILITY [None]
  - CRYING [None]
  - DEPRESSED MOOD [None]
  - DRUG INTERACTION [None]
  - LETHARGY [None]
